FAERS Safety Report 7492978-7 (Version None)
Quarter: 2011Q2

REPORT INFORMATION
  Report Type: 
  Country: None (occurrence: None)
  Receive Date: 20110520
  Receipt Date: 20110509
  Transmission Date: 20111010
  Serious: Yes (Other)
  Sender: FDA-Public Use
  Company Number: IT-JNJFOC-20110505199

PATIENT
  Sex: Female

DRUGS (3)
  1. HALOPERIDOL [Suspect]
     Indication: PRODUCT USED FOR UNKNOWN INDICATION
     Dosage: 2 MG/ML
     Route: 048
     Dates: start: 20110423, end: 20110505
  2. QUINAZIDE [Concomitant]
     Indication: HYPERTENSION
     Route: 048
  3. ASPIRIN [Concomitant]
     Indication: PRODUCT USED FOR UNKNOWN INDICATION
     Route: 048

REACTIONS (4)
  - VERTIGO [None]
  - NAUSEA [None]
  - ASTHENIA [None]
  - ALTERED STATE OF CONSCIOUSNESS [None]
